FAERS Safety Report 23271529 (Version 2)
Quarter: 2024Q1

REPORT INFORMATION
  Report Type: Spontaneous
  Country: US (occurrence: US)
  Receive Date: 20231207
  Receipt Date: 20240123
  Transmission Date: 20240410
  Serious: Yes (Hospitalization, Other)
  Sender: FDA-Public Use
  Company Number: US-PFIZER INC-2020080728

PATIENT
  Age: 80 Year
  Sex: Female

DRUGS (1)
  1. PREMARIN [Suspect]
     Active Substance: ESTROGENS, CONJUGATED
     Indication: Arthralgia
     Dosage: QUANTITY FOR 90 DAYS: 30 GM

REACTIONS (4)
  - Syncope [Unknown]
  - Circulatory collapse [Unknown]
  - Off label use [Unknown]
  - Product prescribing error [Unknown]
